FAERS Safety Report 4344459-7 (Version None)
Quarter: 2004Q2

REPORT INFORMATION
  Report Type: 
  Country: None (occurrence: None)
  Receive Date: 20040422
  Receipt Date: 20040331
  Transmission Date: 20050107
  Serious: Yes (Other)
  Sender: FDA-Public Use
  Company Number: PHBS2004JP04517

PATIENT
  Age: 86 Year
  Sex: Female

DRUGS (4)
  1. PARLODEL [Suspect]
     Indication: PARKINSON'S DISEASE
     Dosage: 7.5 MG, QD
     Route: 048
  2. LEVODOPA [Suspect]
     Indication: PARKINSON'S DISEASE
     Dosage: 200 MG, QD
     Route: 048
  3. LEVODOPA BENSERAZIDE HYDROCHLO [Suspect]
     Indication: PARKINSON'S DISEASE
     Dosage: 50 MG, QD
     Route: 048
  4. PENTAZOCINE HYDROCHLORIDE [Suspect]
     Indication: CANCER PAIN
     Dosage: 75 MEQ, QD

REACTIONS (8)
  - COUGH [None]
  - DISCOMFORT [None]
  - DRUG INTERACTION [None]
  - DYSPNOEA [None]
  - MALIGNANT NEOPLASM PROGRESSION [None]
  - PAIN [None]
  - THERAPEUTIC RESPONSE DECREASED [None]
  - WHEEZING [None]
